FAERS Safety Report 13996451 (Version 1)
Quarter: 2017Q3

REPORT INFORMATION
  Report Type: Spontaneous
  Country: US (occurrence: US)
  Receive Date: 20170921
  Receipt Date: 20170921
  Transmission Date: 20171128
  Serious: Yes (Hospitalization, Other)
  Sender: FDA-Public Use
  Company Number: US-GLAXOSMITHKLINE-US2017GSK145505

PATIENT
  Sex: Female

DRUGS (3)
  1. PROAIR INHALER [Concomitant]
     Active Substance: ALBUTEROL SULFATE
  2. OXYGEN. [Concomitant]
     Active Substance: OXYGEN
  3. VENTOLIN HFA [Suspect]
     Active Substance: ALBUTEROL SULFATE
     Indication: CHRONIC OBSTRUCTIVE PULMONARY DISEASE
     Dosage: 2 PUFF(S), PRN
     Route: 055

REACTIONS (5)
  - Product use in unapproved indication [Unknown]
  - Circumstance or information capable of leading to medication error [Unknown]
  - Product label confusion [Unknown]
  - Hospitalisation [Unknown]
  - Drug effect decreased [Unknown]
